FAERS Safety Report 16223268 (Version 1)
Quarter: 2019Q2

REPORT INFORMATION
  Report Type: Spontaneous
  Country: US (occurrence: US)
  Receive Date: 20190422
  Receipt Date: 20190422
  Transmission Date: 20190711
  Serious: No
  Sender: FDA-Public Use
  Company Number: US-PFIZER INC-2019161922

PATIENT
  Age: 75 Year
  Sex: Female
  Weight: 77.11 kg

DRUGS (3)
  1. VITAMIN E [Concomitant]
     Active Substance: .ALPHA.-TOCOPHEROL
     Indication: THROMBOSIS
     Dosage: 200 IU, 1X/DAY
     Route: 048
     Dates: start: 1983
  2. ESTROPIPATE. [Suspect]
     Active Substance: ESTROPIPATE
     Indication: HYSTEROSALPINGO-OOPHORECTOMY
     Dosage: UNK
  3. CALCIUM [Concomitant]
     Active Substance: CALCIUM
     Indication: OSTEOPOROSIS
     Dosage: 1200 MG, 1X/DAY
     Route: 048

REACTIONS (2)
  - Headache [Unknown]
  - Hot flush [Unknown]
